FAERS Safety Report 19365943 (Version 1)
Quarter: 2021Q2

REPORT INFORMATION
  Report Type: Spontaneous
  Country: US (occurrence: US)
  Receive Date: 20210603
  Receipt Date: 20210603
  Transmission Date: 20210717
  Serious: Yes (Hospitalization)
  Sender: FDA-Public Use
  Company Number: None

PATIENT
  Age: 72 Year
  Sex: Male

DRUGS (10)
  1. TRAZODONE [Concomitant]
     Active Substance: TRAZODONE HYDROCHLORIDE
  2. TESTOSTERONE GEL [Concomitant]
     Active Substance: TESTOSTERONE
  3. TADALAFIL. [Concomitant]
     Active Substance: TADALAFIL
  4. IBUPROFEN. [Concomitant]
     Active Substance: IBUPROFEN
  5. AMOXICILLIN. [Concomitant]
     Active Substance: AMOXICILLIN
  6. CHLORHEX GLU [Concomitant]
     Active Substance: CHLORHEXIDINE GLUCONATE
  7. HYDROCO/APAP [Concomitant]
     Active Substance: ACETAMINOPHEN\HYDROCODONE
  8. PEG 3350/KCL SOL/SODIUM [Concomitant]
  9. VITAMIN D [Concomitant]
     Active Substance: VITAMIN D NOS
  10. HUMIRA [Suspect]
     Active Substance: ADALIMUMAB
     Indication: CROHN^S DISEASE
     Dosage: PEN
     Route: 058
     Dates: start: 20190202

REACTIONS (2)
  - Eye swelling [None]
  - Diarrhoea [None]

NARRATIVE: CASE EVENT DATE: 20210602
